FAERS Safety Report 16717467 (Version 2)
Quarter: 2019Q3

REPORT INFORMATION
  Report Type: Report from Study
  Country: None (occurrence: CO)
  Receive Date: 20190819
  Receipt Date: 20190911
  Transmission Date: 20191005
  Serious: Yes (Hospitalization, Other)
  Sender: FDA-Public Use
  Company Number: CO-ABBVIE-19K-036-2891766-00

PATIENT
  Age: 44 Year
  Sex: Male
  Weight: 92 kg

DRUGS (1)
  1. HUMIRA [Suspect]
     Active Substance: ADALIMUMAB
     Indication: PSORIASIS
     Dosage: CITRATE FREE
     Route: 058
     Dates: start: 20110107, end: 20190212

REACTIONS (2)
  - Cerebrovascular accident [Unknown]
  - Seizure [Unknown]

NARRATIVE: CASE EVENT DATE: 201908
